FAERS Safety Report 4981909-7 (Version None)
Quarter: 2006Q2

REPORT INFORMATION
  Report Type: 
  Country: None (occurrence: None)
  Receive Date: 20060425
  Receipt Date: 20050913
  Transmission Date: 20061013
  Serious: Yes (Death, Hospitalization)
  Sender: FDA-Public Use
  Company Number: US-MERCK-0509USA01861

PATIENT
  Age: 71 Year
  Sex: Female
  Weight: 92 kg

DRUGS (1)
  1. VIOXX [Suspect]
     Indication: ARTHRITIS
     Route: 048
     Dates: start: 20011012, end: 20041221

REACTIONS (4)
  - ABASIA [None]
  - DEATH [None]
  - GENERAL SYMPTOM [None]
  - MYOCARDIAL INFARCTION [None]
